FAERS Safety Report 8172096-5 (Version None)
Quarter: 2012Q1

REPORT INFORMATION
  Report Type: 
  Country: None (occurrence: None)
  Receive Date: 20120228
  Receipt Date: 20120223
  Transmission Date: 20120608
  Serious: Yes (Death)
  Sender: FDA-Public Use
  Company Number: US-ASTRAZENECA-2007UW22302

PATIENT
  Age: 84 Year
  Sex: Female
  Weight: 81.6 kg

DRUGS (3)
  1. LISINOPRIL [Concomitant]
  2. ARIMIDEX [Suspect]
     Indication: BREAST CANCER
     Route: 048
     Dates: start: 20050101
  3. LEVOXIN [Concomitant]

REACTIONS (3)
  - JOINT SWELLING [None]
  - MUSCLE SPASMS [None]
  - DEATH [None]
